FAERS Safety Report 21266932 (Version 2)
Quarter: 2022Q3

REPORT INFORMATION
  Report Type: Spontaneous
  Country: KE (occurrence: KE)
  Receive Date: 20220829
  Receipt Date: 20220829
  Transmission Date: 20221027
  Serious: Yes (Death, Hospitalization, Other)
  Sender: FDA-Public Use
  Company Number: KE-PFIZER INC-PV202200044504

PATIENT
  Age: 26 Year
  Sex: Female

DRUGS (10)
  1. METHOTREXATE SODIUM [Suspect]
     Active Substance: METHOTREXATE SODIUM
     Indication: Gestational trophoblastic tumour
     Dosage: 100 MG/M2, CYCLIC (DAY 1)
  2. METHOTREXATE SODIUM [Suspect]
     Active Substance: METHOTREXATE SODIUM
     Dosage: 200 MG/M2, CYCLIC (OVER A PERIOD OF 12 HOURS)
  3. ETOPOSIDE [Suspect]
     Active Substance: ETOPOSIDE
     Indication: Gestational trophoblastic tumour
     Dosage: 100 MG/M2, CYCLIC (DAY 1)
  4. ETOPOSIDE [Suspect]
     Active Substance: ETOPOSIDE
     Dosage: 100 MG/M2, CYCLIC (DAY 2)
  5. ETOPOSIDE [Suspect]
     Active Substance: ETOPOSIDE
     Dosage: 150 MG/M2, CYCLIC
  6. ACTINOMYCIN D [Suspect]
     Active Substance: DACTINOMYCIN
     Indication: Gestational trophoblastic tumour
     Dosage: 0.5 MG, CYCLIC (DAY 1)
  7. ACTINOMYCIN D [Suspect]
     Active Substance: DACTINOMYCIN
     Dosage: 0.5 MG, CYCLIC (DAY 2)
  8. LEUCOVORIN [Suspect]
     Active Substance: LEUCOVORIN
     Indication: Gestational trophoblastic tumour
     Dosage: 15 MG, 4X/DAY (EVERY 6 HOURS, AFTER THE FIRST METHOTREXATE DOSE)
  9. VINCRISTINE [Suspect]
     Active Substance: VINCRISTINE
     Indication: Gestational trophoblastic tumour
     Dosage: 1 MG, CYCLIC (ON DAY 8)
  10. CYCLOPHOSPHAMIDE [Suspect]
     Active Substance: CYCLOPHOSPHAMIDE
     Indication: Gestational trophoblastic tumour
     Dosage: 600 MG/M2, CYCLIC

REACTIONS (3)
  - Death [Fatal]
  - Myelosuppression [Unknown]
  - Human chorionic gonadotropin increased [Unknown]
